FAERS Safety Report 9664751 (Version 2)
Quarter: 2014Q2

REPORT INFORMATION
  Report Type: Spontaneous
  Country: US (occurrence: US)
  Receive Date: 20131101
  Receipt Date: 20140630
  Transmission Date: 20141212
  Serious: Yes (Other)
  Sender: FDA-Public Use
  Company Number: US-BAYER-2013-133820

PATIENT
  Age: 49 Year
  Sex: Female
  Weight: 78.96 kg

DRUGS (2)
  1. MIRENA [Suspect]
     Indication: MENORRHAGIA
     Dosage: 20 ?G/D, CONT
     Route: 015
     Dates: start: 20130522, end: 20130826
  2. MIRENA [Suspect]
     Indication: CONTRACEPTION

REACTIONS (1)
  - Embedded device [Recovered/Resolved]
